FAERS Safety Report 7302065-6 (Version None)
Quarter: 2011Q1

REPORT INFORMATION
  Report Type: 
  Country: None (occurrence: None)
  Receive Date: 20110218
  Receipt Date: 20110208
  Transmission Date: 20110831
  Serious: Yes (Other)
  Sender: FDA-Public Use
  Company Number: DE-NAPPMUNDI-DEU-2011-0007007

PATIENT
  Age: 91 Year
  Sex: Female

DRUGS (4)
  1. ATACAND [Concomitant]
  2. TORASEMID [Concomitant]
  3. NORSPAN 10 UG/H [Suspect]
     Indication: PRODUCT USED FOR UNKNOWN INDICATION
     Dosage: 10 MCG, Q1H
     Route: 062
     Dates: start: 20090101
  4. BISOPROLOL [Concomitant]

REACTIONS (1)
  - MACULAR DEGENERATION [None]
